FAERS Safety Report 16358350 (Version 1)
Quarter: 2019Q2

REPORT INFORMATION
  Report Type: Spontaneous
  Country: US (occurrence: US)
  Receive Date: 20190527
  Receipt Date: 20190527
  Transmission Date: 20190711
  Serious: Yes (Other)
  Sender: FDA-Public Use
  Company Number: US-PFIZER INC-2019218355

PATIENT
  Age: 2 Week
  Sex: Male
  Weight: 4.7 kg

DRUGS (6)
  1. ATROPINE SULFATE. [Suspect]
     Active Substance: ATROPINE SULFATE
     Indication: APNOEA
     Dosage: 0.01 MG/KG, UNK
     Route: 042
  2. PRALIDOXIME CHLORIDE. [Concomitant]
     Active Substance: PRALIDOXIME CHLORIDE
     Dosage: UNK (INFUSION)
     Route: 042
  3. OXYGEN. [Concomitant]
     Active Substance: OXYGEN
     Indication: SUPPLEMENTATION THERAPY
     Dosage: UNK
  4. LORAZEPAM. [Concomitant]
     Active Substance: LORAZEPAM
     Indication: APNOEA
     Dosage: UNK
  5. ATROPINE SULFATE. [Suspect]
     Active Substance: ATROPINE SULFATE
     Indication: RESPIRATORY FAILURE
     Dosage: 0.2 MG, UNK (EVERY 3H)
     Route: 042
  6. PRALIDOXIME CHLORIDE. [Concomitant]
     Active Substance: PRALIDOXIME CHLORIDE
     Indication: RESPIRATORY FAILURE
     Dosage: 10 MG/KG, UNK
     Route: 040

REACTIONS (2)
  - Bronchial secretion retention [Unknown]
  - Neonatal hypoxia [Unknown]
